FAERS Safety Report 7919364-7 (Version None)
Quarter: 2011Q4

REPORT INFORMATION
  Report Type: 
  Country: None (occurrence: None)
  Receive Date: 20111117
  Receipt Date: 20111108
  Transmission Date: 20120403
  Serious: Yes (Other)
  Sender: FDA-Public Use
  Company Number: ES-JNJFOC-20100404306

PATIENT
  Age: 86 Year
  Sex: Female

DRUGS (2)
  1. TRAMADOL HYDROCHLORIDE AND ACETAMINOPHEN [Suspect]
     Route: 048
     Dates: start: 20091006, end: 20091007
  2. TRAMADOL HYDROCHLORIDE AND ACETAMINOPHEN [Suspect]
     Indication: ILL-DEFINED DISORDER
     Route: 048
     Dates: start: 20091008, end: 20091008

REACTIONS (4)
  - SPEECH DISORDER [None]
  - DYSPHAGIA [None]
  - DYSPNOEA [None]
  - ACUTE RESPIRATORY FAILURE [None]
